FAERS Safety Report 14481248 (Version 1)
Quarter: 2018Q1

REPORT INFORMATION
  Report Type: Other
  Country: IT (occurrence: IT)
  Receive Date: 20180202
  Receipt Date: 20180202
  Transmission Date: 20180509
  Serious: Yes (Hospitalization)
  Sender: FDA-Public Use
  Company Number: IT-AKRON, INC.-2041299

PATIENT
  Age: 44 Year
  Sex: Male

DRUGS (1)
  1. LEVOFLOXACIN INJECTION [Suspect]
     Active Substance: LEVOFLOXACIN
     Route: 042

REACTIONS (1)
  - Eosinophilic pneumonia [Recovered/Resolved]
